FAERS Safety Report 13470646 (Version 4)
Quarter: 2017Q2

REPORT INFORMATION
  Report Type: Report from Study
  Country: AU (occurrence: AU)
  Receive Date: 20170424
  Receipt Date: 20170614
  Transmission Date: 20170830
  Serious: Yes (Hospitalization)
  Sender: FDA-Public Use
  Company Number: AU-ROCHE-1920980

PATIENT
  Age: 71 Year
  Sex: Male
  Weight: 71.1 kg

DRUGS (12)
  1. PALONOSETRON [Concomitant]
     Active Substance: PALONOSETRON
     Indication: VOMITING
  2. COLOXYL WITH SENNA [Concomitant]
     Active Substance: DOCUSATE\SENNOSIDES
     Indication: CONSTIPATION
     Route: 065
     Dates: start: 20170122
  3. FOLIC ACID. [Concomitant]
     Active Substance: FOLIC ACID
     Indication: PROPHYLAXIS
     Route: 065
     Dates: start: 20170104
  4. RANITIDINE. [Concomitant]
     Active Substance: RANITIDINE
     Dosage: AFTER CYCLE 2 INFUSION REACTION, GIVEN DAY -1 AND DAY 1 OF EACH CYCLE
     Route: 065
     Dates: start: 20170302
  5. ATEZOLIZUMAB [Suspect]
     Active Substance: ATEZOLIZUMAB
     Indication: NON-SMALL CELL LUNG CANCER STAGE IV
     Dosage: MOST RECENT DOSE PRIOR TO SAE : 30/MAR/2017
     Route: 042
     Dates: start: 20170116
  6. PREDNISONE. [Concomitant]
     Active Substance: PREDNISONE
     Route: 065
  7. VITAMIN B12 [Concomitant]
     Active Substance: CYANOCOBALAMIN
     Indication: PROPHYLAXIS
     Route: 065
     Dates: start: 20170104
  8. PALONOSETRON [Concomitant]
     Active Substance: PALONOSETRON
     Indication: NAUSEA
     Route: 065
     Dates: start: 20170116, end: 20170330
  9. CARBOPLATIN. [Suspect]
     Active Substance: CARBOPLATIN
     Indication: NON-SMALL CELL LUNG CANCER STAGE IV
     Dosage: MOST RECENT DOSE: 650 MG ON 30/MAR/2017?TO ACHIEVE AN INITIAL TARGET AREA UNDER THE CONCENTRATION-TI
     Route: 042
     Dates: start: 20170116
  10. PEMETREXED. [Suspect]
     Active Substance: PEMETREXED
     Indication: NON-SMALL CELL LUNG CANCER STAGE IV
     Dosage: MOST RECENT DOSE: 900 MG ON 30/MAR/2017
     Route: 042
     Dates: start: 20170116
  11. BREO ELLIPTA [Concomitant]
     Active Substance: FLUTICASONE FUROATE\VILANTEROL TRIFENATATE
  12. LORATADINE. [Concomitant]
     Active Substance: LORATADINE
     Dosage: AFTER CYCLE 2 INFUSION REACTION, GIVEN DAY -1 AND DAY 1 OF EACH CYCLE
     Route: 065
     Dates: start: 20170302

REACTIONS (1)
  - Thrombocytopenia [Recovered/Resolved]

NARRATIVE: CASE EVENT DATE: 20170412
